FAERS Safety Report 9649233 (Version 2)
Quarter: 2014Q1

REPORT INFORMATION
  Report Type: Spontaneous
  Country: US (occurrence: US)
  Receive Date: 20131028
  Receipt Date: 20140121
  Transmission Date: 20141002
  Serious: Yes (Other)
  Sender: FDA-Public Use
  Company Number: US-GLAXOSMITHKLINE-A1022064A

PATIENT
  Age: 66 Year
  Sex: Female
  Weight: 104.5 kg

DRUGS (7)
  1. VOTRIENT [Suspect]
     Indication: RETROPERITONEAL CANCER
     Dosage: 800MG PER DAY
     Route: 048
     Dates: start: 20130401
  2. FLEXERIL [Concomitant]
  3. VITAMIN B12 [Concomitant]
  4. POTASSIUM [Concomitant]
  5. HYDROCHLOROTHIAZIDE [Concomitant]
  6. IBUPROFEN [Concomitant]
  7. THERAGRAN M [Concomitant]

REACTIONS (13)
  - Radiotherapy [Recovered/Resolved]
  - Abdominal pain [Recovered/Resolved]
  - Aphthous stomatitis [Recovered/Resolved]
  - Chapped lips [Recovered/Resolved]
  - Lip dry [Recovered/Resolved]
  - Glossodynia [Recovered/Resolved]
  - Axillary pain [Recovered/Resolved]
  - Skin ulcer [Recovered/Resolved]
  - Gingival pain [Recovered/Resolved]
  - Hair colour changes [Recovered/Resolved]
  - Skin discolouration [Recovered/Resolved]
  - Faeces discoloured [Recovered/Resolved]
  - Abdominal discomfort [Recovered/Resolved]
